FAERS Safety Report 14935485 (Version 1)
Quarter: 2018Q2

REPORT INFORMATION
  Report Type: Spontaneous
  Country: US (occurrence: US)
  Receive Date: 20180524
  Receipt Date: 20180524
  Transmission Date: 20180711
  Serious: No
  Sender: FDA-Public Use
  Company Number: US-PERRIGO-18US004276

PATIENT
  Age: 18 Year
  Sex: Female
  Weight: 104.31 kg

DRUGS (12)
  1. DIHYDROERGOTAMINE MESYLATE. [Suspect]
     Active Substance: DIHYDROERGOTAMINE MESYLATE
     Dosage: 1 MG, UP TO TID, PRN
     Route: 030
     Dates: start: 201803, end: 20180408
  2. DIHYDROERGOTAMINE MESYLATE. [Suspect]
     Active Substance: DIHYDROERGOTAMINE MESYLATE
     Dosage: 1 MG, SINGLE
     Route: 030
     Dates: start: 20180409, end: 20180409
  3. CANDESARTAN. [Concomitant]
     Active Substance: CANDESARTAN
     Indication: MIGRAINE
     Dosage: UNK
     Route: 065
     Dates: start: 2018
  4. AZURETTE [Concomitant]
     Active Substance: DESOGESTREL\ETHINYL ESTRADIOL
     Indication: MIGRAINE
     Dosage: UNK
     Route: 065
  5. XANAX [Concomitant]
     Active Substance: ALPRAZOLAM
     Indication: ANXIETY
     Dosage: UNK
     Route: 065
  6. HORIZANT [Concomitant]
     Active Substance: GABAPENTIN ENACARBIL
     Indication: MIGRAINE
     Dosage: UNK
     Route: 065
     Dates: start: 201804
  7. DIHYDROERGOTAMINE MESYLATE. [Suspect]
     Active Substance: DIHYDROERGOTAMINE MESYLATE
     Indication: MIGRAINE
     Dosage: 1 MG, UP TO TID, PRN
     Route: 030
     Dates: start: 201710, end: 201803
  8. DHE                                /00017802/ [Concomitant]
     Indication: MIGRAINE
     Dosage: UNK, INFUSION
     Route: 042
     Dates: start: 2013
  9. VITAMINS NOS [Concomitant]
     Active Substance: VITAMINS
     Indication: SUPPLEMENTATION THERAPY
     Dosage: UNK
     Route: 065
  10. DIHYDROERGOTAMINE MESYLATE. [Suspect]
     Active Substance: DIHYDROERGOTAMINE MESYLATE
     Dosage: 1 MG, SINGLE
     Route: 030
     Dates: start: 20180415, end: 20180415
  11. BELSOMRA [Concomitant]
     Active Substance: SUVOREXANT
     Indication: SLEEP DISORDER
     Dosage: UNK
     Route: 065
     Dates: start: 2018
  12. FENOPROFEN. [Concomitant]
     Active Substance: FENOPROFEN
     Indication: MIGRAINE
     Dosage: UNK
     Route: 065
     Dates: start: 2017

REACTIONS (2)
  - Injection site inflammation [Not Recovered/Not Resolved]
  - Injection site erythema [Not Recovered/Not Resolved]

NARRATIVE: CASE EVENT DATE: 201803
